FAERS Safety Report 13736875 (Version 1)
Quarter: 2017Q3

REPORT INFORMATION
  Report Type: Spontaneous
  Country: US (occurrence: US)
  Receive Date: 20170710
  Receipt Date: 20170710
  Transmission Date: 20171127
  Serious: Yes (Other)
  Sender: FDA-Public Use
  Company Number: None

PATIENT
  Age: 57 Year
  Sex: Female

DRUGS (1)
  1. IBRANCE [Suspect]
     Active Substance: PALBOCICLIB
     Indication: BREAST CANCER FEMALE
     Dosage: 125MG 1 PER DAY BY MOUTH
     Route: 048
     Dates: start: 20150501, end: 20170707

REACTIONS (1)
  - Erosive oesophagitis [None]

NARRATIVE: CASE EVENT DATE: 201705
